FAERS Safety Report 8226502-8 (Version None)
Quarter: 2012Q1

REPORT INFORMATION
  Report Type: 
  Country: None (occurrence: None)
  Receive Date: 20120322
  Receipt Date: 20120312
  Transmission Date: 20120608
  Serious: Yes (Hospitalization)
  Sender: FDA-Public Use
  Company Number: US-BIOGENIDEC-2011BI044867

PATIENT
  Age: 41 Year
  Sex: Female

DRUGS (4)
  1. DEPAKOTE [Concomitant]
     Indication: PAIN
     Route: 048
  2. WELLBUTRIN [Concomitant]
     Indication: DEPRESSION
     Route: 048
     Dates: start: 20080101
  3. DEPAKOTE [Concomitant]
     Indication: BIPOLAR DISORDER
     Route: 048
  4. TYSABRI [Suspect]
     Indication: MULTIPLE SCLEROSIS
     Route: 042
     Dates: start: 20061025

REACTIONS (5)
  - INTRACRANIAL HYPOTENSION [None]
  - POST LUMBAR PUNCTURE SYNDROME [None]
  - MULTIPLE SCLEROSIS [None]
  - HYPOAESTHESIA [None]
  - VOMITING [None]
